FAERS Safety Report 8465197-5 (Version None)
Quarter: 2012Q2

REPORT INFORMATION
  Report Type: 
  Country: None (occurrence: None)
  Receive Date: 20120626
  Receipt Date: 20120619
  Transmission Date: 20120825
  Serious: Yes (Other)
  Sender: FDA-Public Use
  Company Number: PHHY2012AU053149

PATIENT
  Sex: Female

DRUGS (5)
  1. ZOLEDRONOC ACID [Suspect]
     Route: 042
  2. THIAZIDES [Concomitant]
     Indication: POLYURIA
  3. ZOLEDRONOC ACID [Suspect]
     Route: 042
  4. ZOLEDRONOC ACID [Suspect]
     Route: 042
  5. MICARDIS [Concomitant]
     Indication: HYPERTENSION

REACTIONS (2)
  - BONE DENSITY DECREASED [None]
  - INTERVERTEBRAL DISC DEGENERATION [None]
